FAERS Safety Report 9387084 (Version 1)
Quarter: 2013Q3

REPORT INFORMATION
  Report Type: Spontaneous
  Country: IT (occurrence: None)
  Receive Date: 20130702
  Receipt Date: 20130702
  Transmission Date: 20140515
  Serious: Yes (Other)
  Sender: FDA-Public Use
  Company Number: AUR-APL-2013-05371

PATIENT
  Age: 63 Year
  Sex: Female

DRUGS (1)
  1. AMOXICILLIN (AMOXICILLIN) [Suspect]
     Indication: OROPHARYNGEAL PAIN
     Dosage: (1000 MG,TOTAL),ORAL
     Route: 048
     Dates: start: 20130611, end: 20130611

REACTIONS (5)
  - Pruritus generalised [None]
  - Erythema [None]
  - Dry mouth [None]
  - Burning sensation [None]
  - Cough [None]
